FAERS Safety Report 9611359 (Version 1)
Quarter: 2013Q4

REPORT INFORMATION
  Report Type: Spontaneous
  Country: US (occurrence: US)
  Receive Date: 20131010
  Receipt Date: 20131010
  Transmission Date: 20140711
  Serious: Yes (Hospitalization)
  Sender: FDA-Public Use
  Company Number: US-BIOGENIDEC-2013BI097480

PATIENT
  Age: 55 Year
  Sex: Female

DRUGS (9)
  1. TECFIDERA [Suspect]
     Indication: MULTIPLE SCLEROSIS
     Route: 048
     Dates: start: 20130704, end: 201307
  2. TECFIDERA [Suspect]
     Indication: MULTIPLE SCLEROSIS
     Route: 048
     Dates: start: 201307, end: 20130722
  3. ARICEPT [Concomitant]
  4. LAMICTAL [Concomitant]
     Indication: CONVULSION
  5. EXELON [Concomitant]
     Indication: COGNITIVE DISORDER
     Route: 062
  6. PHENERGAN [Concomitant]
     Indication: VOMITING
  7. PHENERGAN [Concomitant]
     Indication: NAUSEA
  8. LEVAQUIN [Concomitant]
     Indication: URINARY TRACT INFECTION
  9. LEVAQUIN [Concomitant]
     Indication: KIDNEY INFECTION

REACTIONS (2)
  - Dystonia [Recovered/Resolved]
  - Convulsion [Recovered/Resolved]
